FAERS Safety Report 12996915 (Version 1)
Quarter: 2016Q4

REPORT INFORMATION
  Report Type: Spontaneous
  Country: IT (occurrence: IT)
  Receive Date: 20161205
  Receipt Date: 20161205
  Transmission Date: 20170207
  Serious: Yes (Hospitalization)
  Sender: FDA-Public Use
  Company Number: PHHY2016IT163321

PATIENT
  Age: 51 Year
  Sex: Female

DRUGS (4)
  1. EUTIROX [Concomitant]
     Active Substance: LEVOTHYROXINE SODIUM
     Indication: PRODUCT USED FOR UNKNOWN INDICATION
     Route: 048
  2. OLANZAPINE. [Suspect]
     Active Substance: OLANZAPINE
     Indication: SUICIDE ATTEMPT
     Dosage: UNK, ONCE/SINGLE
     Route: 048
     Dates: start: 20161003, end: 20161003
  3. GABAPENTIN. [Suspect]
     Active Substance: GABAPENTIN
     Indication: SUICIDE ATTEMPT
     Dosage: UNK, ONCE/SINGLE
     Route: 048
     Dates: start: 20161003, end: 20161003
  4. ALPRAZOLAM. [Suspect]
     Active Substance: ALPRAZOLAM
     Indication: SUICIDE ATTEMPT
     Dosage: UNK UNK, ONCE/SINGLE
     Route: 048
     Dates: start: 20161003, end: 20161003

REACTIONS (6)
  - Injury [Unknown]
  - Drug abuse [Unknown]
  - Coma [Unknown]
  - Toxicity to various agents [Unknown]
  - Intentional self-injury [Unknown]
  - Excoriation [Unknown]

NARRATIVE: CASE EVENT DATE: 20161003
